FAERS Safety Report 13537359 (Version 2)
Quarter: 2018Q2

REPORT INFORMATION
  Report Type: Spontaneous
  Country: US (occurrence: US)
  Receive Date: 20170511
  Receipt Date: 20180601
  Transmission Date: 20180711
  Serious: Yes (Other)
  Sender: FDA-Public Use
  Company Number: US-ASTRAZENECA-2017SE48947

PATIENT
  Age: 20769 Day
  Sex: Female
  Weight: 96.2 kg

DRUGS (84)
  1. NEXIUM [Suspect]
     Active Substance: ESOMEPRAZOLE MAGNESIUM
     Indication: GASTROOESOPHAGEAL REFLUX DISEASE
     Route: 048
     Dates: start: 20101005, end: 2016
  2. PREVACID [Suspect]
     Active Substance: LANSOPRAZOLE
     Route: 048
     Dates: start: 20060106
  3. AMARYL [Concomitant]
     Active Substance: GLIMEPIRIDE
     Dosage: GENERIC
     Route: 065
     Dates: start: 20050104
  4. AMOXICILLIN. [Concomitant]
     Active Substance: AMOXICILLIN
     Dosage: GENERIC
     Route: 065
     Dates: start: 20050428
  5. LANTUS [Concomitant]
     Active Substance: INSULIN GLARGINE
     Dosage: GENERIC
     Route: 065
     Dates: start: 20051202
  6. PROAIR HFA [Concomitant]
     Active Substance: ALBUTEROL SULFATE
     Dosage: GENERIC
     Route: 065
     Dates: start: 20070301
  7. ZOLPIDEM TARTRATE. [Concomitant]
     Active Substance: ZOLPIDEM TARTRATE
     Dosage: GENERIC
     Route: 065
     Dates: start: 20070507
  8. ROZEREM [Concomitant]
     Active Substance: RAMELTEON
     Dosage: GENERIC
     Route: 065
     Dates: start: 20071106
  9. LOTEMAX [Concomitant]
     Active Substance: LOTEPREDNOL ETABONATE
     Dosage: GENERIC
     Route: 065
     Dates: start: 20071203
  10. CALCITRIOL. [Concomitant]
     Active Substance: CALCITRIOL
     Dosage: 0.25 GENERIC
     Route: 065
     Dates: start: 20080806
  11. VENTOLIN [Concomitant]
     Active Substance: ALBUTEROL SULFATE
     Dosage: GENERIC
     Route: 065
     Dates: start: 20100802
  12. ELESTAT [Concomitant]
     Active Substance: EPINASTINE HYDROCHLORIDE
     Dosage: GENERIC
     Route: 065
     Dates: start: 20051202
  13. FEXOFENADINE [Concomitant]
     Active Substance: FEXOFENADINE\FEXOFENADINE HYDROCHLORIDE
     Dosage: GENERIC
     Route: 065
     Dates: start: 20060910
  14. ERYTHROMYCIN. [Concomitant]
     Active Substance: ERYTHROMYCIN
     Dosage: GENERIC
     Route: 065
     Dates: start: 20061020
  15. DOCUSATE SODIUM. [Concomitant]
     Active Substance: DOCUSATE SODIUM
     Route: 065
     Dates: start: 20101117
  16. TRILIPIX [Concomitant]
     Active Substance: FENOFIBRIC ACID
     Route: 065
     Dates: start: 20110210
  17. PREDNISOLONE. [Concomitant]
     Active Substance: PREDNISOLONE
     Route: 065
     Dates: start: 20110810
  18. SINGULAIR [Concomitant]
     Active Substance: MONTELUKAST SODIUM
     Route: 065
  19. ASPIRIN. [Concomitant]
     Active Substance: ASPIRIN
     Indication: ANTICOAGULANT THERAPY
  20. NEXIUM [Suspect]
     Active Substance: ESOMEPRAZOLE MAGNESIUM
     Indication: GASTROOESOPHAGEAL REFLUX DISEASE
     Route: 048
     Dates: start: 20100603, end: 2016
  21. NEXIUM [Suspect]
     Active Substance: ESOMEPRAZOLE MAGNESIUM
     Indication: GASTROOESOPHAGEAL REFLUX DISEASE
     Route: 048
     Dates: start: 20110310, end: 2016
  22. NEXIUM [Suspect]
     Active Substance: ESOMEPRAZOLE MAGNESIUM
     Indication: GASTROOESOPHAGEAL REFLUX DISEASE
     Route: 048
     Dates: start: 20110513, end: 2016
  23. PREVACID [Suspect]
     Active Substance: LANSOPRAZOLE
     Route: 048
     Dates: start: 20081205
  24. GLIPIZIDE. [Concomitant]
     Active Substance: GLIPIZIDE
     Dosage: GENERIC
     Route: 065
     Dates: start: 20050531
  25. GLIMEPIRIDE. [Concomitant]
     Active Substance: GLIMEPIRIDE
     Dosage: GENERIC
     Route: 065
     Dates: start: 20060610
  26. LEVAQUIN [Concomitant]
     Active Substance: LEVOFLOXACIN
     Dosage: GENERIC
     Route: 065
     Dates: start: 20060612
  27. ZYRTEC [Concomitant]
     Active Substance: CETIRIZINE HYDROCHLORIDE
     Dosage: GENERIC
     Route: 065
     Dates: start: 20070402
  28. TEMAZEPAM. [Concomitant]
     Active Substance: TEMAZEPAM
     Dosage: GENERIC
     Route: 065
     Dates: start: 20080604
  29. LANTUS SOLOSTAR [Concomitant]
     Active Substance: INSULIN GLARGINE
     Dosage: GENERIC
     Route: 065
     Dates: start: 20080703
  30. SMZ-TMP [Concomitant]
     Active Substance: SULFAMETHOXAZOLE\TRIMETHOPRIM
     Dosage: GENERIC
     Route: 065
     Dates: start: 20090620
  31. NAPROXEN. [Concomitant]
     Active Substance: NAPROXEN
     Dosage: GENERIC
     Route: 065
     Dates: start: 20100111
  32. PROTOPIC [Concomitant]
     Active Substance: TACROLIMUS
     Route: 065
     Dates: start: 20101101
  33. ACTOS [Concomitant]
     Active Substance: PIOGLITAZONE HYDROCHLORIDE
     Route: 065
     Dates: start: 20110210
  34. NEXIUM [Suspect]
     Active Substance: ESOMEPRAZOLE MAGNESIUM
     Indication: GASTROOESOPHAGEAL REFLUX DISEASE
     Route: 048
     Dates: start: 20090902, end: 2016
  35. PRILOSEC [Suspect]
     Active Substance: OMEPRAZOLE MAGNESIUM
     Indication: GASTROOESOPHAGEAL REFLUX DISEASE
     Dosage: GENERIC
     Route: 048
  36. DEXILANT [Suspect]
     Active Substance: DEXLANSOPRAZOLE
     Route: 065
  37. GEMFIBROZIL. [Concomitant]
     Active Substance: GEMFIBROZIL
     Dosage: GENERIC
     Route: 065
     Dates: start: 20050303
  38. FLUTICASONE. [Concomitant]
     Active Substance: FLUTICASONE
     Dosage: GENERIC
     Route: 065
     Dates: start: 20060910
  39. ALBUTEROL. [Concomitant]
     Active Substance: ALBUTEROL
     Dosage: GENERIC
     Route: 055
     Dates: start: 20061103
  40. RESTASIS [Concomitant]
     Active Substance: CYCLOSPORINE
     Dosage: GENERIC
     Route: 065
     Dates: start: 20070220
  41. LISINOPRIL. [Concomitant]
     Active Substance: LISINOPRIL
     Dosage: GENERIC
     Route: 048
     Dates: start: 20080604
  42. DOXYCYCLINE. [Concomitant]
     Active Substance: DOXYCYCLINE
     Dosage: GENERIC
     Route: 065
     Dates: start: 20090620
  43. TRIAMCINOLON E [Concomitant]
     Active Substance: CHLOROXINE\TRIAMCINOLONE ACETONIDE
     Route: 065
     Dates: start: 20101101
  44. NEXIUM [Suspect]
     Active Substance: ESOMEPRAZOLE MAGNESIUM
     Indication: GASTROOESOPHAGEAL REFLUX DISEASE
     Route: 048
     Dates: start: 20090416, end: 2016
  45. NEXIUM [Suspect]
     Active Substance: ESOMEPRAZOLE MAGNESIUM
     Indication: GASTROOESOPHAGEAL REFLUX DISEASE
     Route: 048
     Dates: start: 20090519, end: 2016
  46. NEXIUM [Suspect]
     Active Substance: ESOMEPRAZOLE MAGNESIUM
     Indication: GASTROOESOPHAGEAL REFLUX DISEASE
     Route: 048
     Dates: start: 20090801, end: 2016
  47. NEXIUM [Suspect]
     Active Substance: ESOMEPRAZOLE MAGNESIUM
     Indication: GASTROOESOPHAGEAL REFLUX DISEASE
     Route: 048
     Dates: start: 20100510, end: 2016
  48. NEXIUM [Suspect]
     Active Substance: ESOMEPRAZOLE MAGNESIUM
     Indication: GASTROOESOPHAGEAL REFLUX DISEASE
     Route: 048
     Dates: start: 20130611
  49. METOCLOPRAM [Concomitant]
     Active Substance: METOCLOPRAMIDE
     Dosage: GENERIC
     Route: 065
     Dates: start: 20060206
  50. METHOCARBAMOL. [Concomitant]
     Active Substance: METHOCARBAMOL
     Dosage: GENERIC
     Route: 065
     Dates: start: 20060910
  51. ATENOLOL. [Concomitant]
     Active Substance: ATENOLOL
     Dosage: GENERIC
     Route: 065
     Dates: start: 20070402
  52. PROMETHAZINE [Concomitant]
     Active Substance: PROMETHAZINE\PROMETHAZINE HYDROCHLORIDE
     Dosage: GENERIC
     Route: 065
     Dates: start: 20080912
  53. VITAMIN D3 [Concomitant]
     Active Substance: CHOLECALCIFEROL
     Dosage: GENERIC
     Route: 065
     Dates: start: 20090407
  54. NEXIUM [Suspect]
     Active Substance: ESOMEPRAZOLE MAGNESIUM
     Indication: GASTROOESOPHAGEAL REFLUX DISEASE
     Dosage: GENERIC
     Route: 048
     Dates: start: 20090102, end: 20160411
  55. NEXIUM [Suspect]
     Active Substance: ESOMEPRAZOLE MAGNESIUM
     Indication: GASTROOESOPHAGEAL REFLUX DISEASE
     Route: 048
     Dates: start: 20090204, end: 2016
  56. NEXIUM [Suspect]
     Active Substance: ESOMEPRAZOLE MAGNESIUM
     Indication: GASTROOESOPHAGEAL REFLUX DISEASE
     Route: 048
     Dates: start: 20090303, end: 2016
  57. NEXIUM [Suspect]
     Active Substance: ESOMEPRAZOLE MAGNESIUM
     Indication: GASTROOESOPHAGEAL REFLUX DISEASE
     Route: 048
     Dates: start: 20090623, end: 2016
  58. NEXIUM [Suspect]
     Active Substance: ESOMEPRAZOLE MAGNESIUM
     Indication: GASTROOESOPHAGEAL REFLUX DISEASE
     Route: 048
     Dates: start: 20100119, end: 2016
  59. NEXIUM [Suspect]
     Active Substance: ESOMEPRAZOLE MAGNESIUM
     Indication: GASTROOESOPHAGEAL REFLUX DISEASE
     Route: 048
     Dates: start: 20100211, end: 2016
  60. NEXIUM [Suspect]
     Active Substance: ESOMEPRAZOLE MAGNESIUM
     Indication: GASTROOESOPHAGEAL REFLUX DISEASE
     Route: 048
     Dates: start: 20100407, end: 2016
  61. NEXIUM [Suspect]
     Active Substance: ESOMEPRAZOLE MAGNESIUM
     Indication: GASTROOESOPHAGEAL REFLUX DISEASE
     Route: 048
     Dates: start: 20100802, end: 2016
  62. NEXIUM [Suspect]
     Active Substance: ESOMEPRAZOLE MAGNESIUM
     Indication: GASTROOESOPHAGEAL REFLUX DISEASE
     Route: 048
     Dates: start: 20110415, end: 2016
  63. CLIMARA [Concomitant]
     Active Substance: ESTRADIOL
     Dosage: GENERIC
     Route: 065
     Dates: start: 20050114
  64. GLYBURIDE. [Concomitant]
     Active Substance: GLYBURIDE
     Dosage: GENERIC
     Route: 065
     Dates: start: 20050503
  65. CLONAZEPAM. [Concomitant]
     Active Substance: CLONAZEPAM
     Dosage: GENERIC
     Route: 065
     Dates: start: 20080708
  66. CIPROFLOXACIN. [Concomitant]
     Active Substance: CIPROFLOXACIN
     Dosage: GENERIC
     Route: 065
     Dates: start: 20090115
  67. LYRICA [Concomitant]
     Active Substance: PREGABALIN
     Route: 065
     Dates: start: 20101117
  68. CARISOPRODOL. [Concomitant]
     Active Substance: CARISOPRODOL
     Route: 065
     Dates: start: 20110809
  69. VITAMIN B12 [Concomitant]
     Active Substance: CYANOCOBALAMIN
  70. PROTONIX [Suspect]
     Active Substance: PANTOPRAZOLE SODIUM
     Indication: GASTROOESOPHAGEAL REFLUX DISEASE
     Dosage: GENERIC
     Route: 065
  71. AMBIEN [Concomitant]
     Active Substance: ZOLPIDEM TARTRATE
     Dosage: GENERIC
     Route: 065
     Dates: start: 20050407
  72. EFFEXOR XR [Concomitant]
     Active Substance: VENLAFAXINE HYDROCHLORIDE
     Dosage: GENERIC
     Route: 065
     Dates: start: 20080213
  73. CHANTIX [Concomitant]
     Active Substance: VARENICLINE TARTRATE
     Dosage: GENERIC
     Route: 065
     Dates: start: 20090212
  74. CITALOPRAM [Concomitant]
     Active Substance: CITALOPRAM HYDROBROMIDE
     Dosage: GENERIC
     Route: 065
     Dates: start: 20090407
  75. NASONEX [Concomitant]
     Active Substance: MOMETASONE FUROATE
     Dosage: GENERIC
     Route: 065
     Dates: start: 20100329
  76. NEXIUM [Suspect]
     Active Substance: ESOMEPRAZOLE MAGNESIUM
     Indication: GASTROOESOPHAGEAL REFLUX DISEASE
     Route: 048
     Dates: start: 20091002, end: 2016
  77. NEXIUM [Suspect]
     Active Substance: ESOMEPRAZOLE MAGNESIUM
     Indication: GASTROOESOPHAGEAL REFLUX DISEASE
     Route: 048
     Dates: start: 20091218, end: 2016
  78. NEXIUM [Suspect]
     Active Substance: ESOMEPRAZOLE MAGNESIUM
     Indication: GASTROOESOPHAGEAL REFLUX DISEASE
     Route: 048
     Dates: start: 20101101, end: 2016
  79. NEXIUM [Suspect]
     Active Substance: ESOMEPRAZOLE MAGNESIUM
     Indication: GASTROOESOPHAGEAL REFLUX DISEASE
     Route: 048
     Dates: start: 20110106, end: 2016
  80. NEXIUM [Suspect]
     Active Substance: ESOMEPRAZOLE MAGNESIUM
     Indication: GASTROOESOPHAGEAL REFLUX DISEASE
     Route: 048
     Dates: start: 20110210, end: 2016
  81. KETOCONAZOLE. [Concomitant]
     Active Substance: KETOCONAZOLE
     Dosage: GENERIC
     Route: 065
     Dates: start: 20050531
  82. COMBIVENT [Concomitant]
     Active Substance: ALBUTEROL SULFATE\IPRATROPIUM BROMIDE
     Route: 065
     Dates: start: 20101101
  83. DIAZEPAM. [Concomitant]
     Active Substance: DIAZEPAM
     Route: 065
     Dates: start: 20101105
  84. BACLOFEN. [Concomitant]
     Active Substance: BACLOFEN
     Route: 065
     Dates: start: 20110415

REACTIONS (9)
  - Hepatitis C [Unknown]
  - Essential hypertension [Recovered/Resolved]
  - Chronic kidney disease [Unknown]
  - Coronary artery disease [Unknown]
  - Hepatic cirrhosis [Recovered/Resolved]
  - Constipation [Unknown]
  - Type 2 diabetes mellitus [Unknown]
  - Urinary tract infection [Unknown]
  - Acute kidney injury [Recovered/Resolved]

NARRATIVE: CASE EVENT DATE: 20130522
